FAERS Safety Report 25955349 (Version 1)
Quarter: 2025Q4

REPORT INFORMATION
  Report Type: Report from Study
  Country: EU (occurrence: EU)
  Receive Date: 20251024
  Receipt Date: 20251024
  Transmission Date: 20260117
  Serious: Yes (Hospitalization, Other)
  Sender: IPSEN BIOPHARMACEUTICALS, INC.
  Company Number: EU-SERVIER-S24010295

PATIENT
  Age: 69 Year
  Sex: Male

DRUGS (3)
  1. ONIVYDE [Suspect]
     Active Substance: IRINOTECAN HYDROCHLORIDE
     Indication: Gastrooesophageal cancer
     Dosage: 141.9 MG
     Dates: start: 20240724, end: 20240724
  2. FLUOROURACIL [Suspect]
     Active Substance: FLUOROURACIL
     Indication: Gastrooesophageal cancer
     Dosage: 5000 MG
     Dates: start: 20240724, end: 20240726
  3. LEUCOVORIN [Suspect]
     Active Substance: LEUCOVORIN\LEUCOVORIN CALCIUM
     Indication: Gastrooesophageal cancer
     Dosage: 800 MG
     Dates: start: 20240724, end: 20240724

REACTIONS (1)
  - Terminal ileitis [Recovered/Resolved with Sequelae]

NARRATIVE: CASE EVENT DATE: 20240808
